FAERS Safety Report 16269505 (Version 1)
Quarter: 2019Q2

REPORT INFORMATION
  Report Type: Spontaneous
  Country: US (occurrence: US)
  Receive Date: 20190502
  Receipt Date: 20190502
  Transmission Date: 20190711
  Serious: Yes (Other)
  Sender: FDA-Public Use
  Company Number: None

PATIENT
  Sex: Female
  Weight: 86.1 kg

DRUGS (15)
  1. TAPAZOLE [Concomitant]
     Active Substance: METHIMAZOLE
  2. METFORMIN [Concomitant]
     Active Substance: METFORMIN HYDROCHLORIDE
  3. AMLODIPINE [Concomitant]
     Active Substance: AMLODIPINE BESYLATE
  4. ADVIL [Concomitant]
     Active Substance: IBUPROFEN
  5. MEKINIST 2 MG TABLET [Concomitant]
     Dates: start: 20180507
  6. CULTURELLE DIGESTIVE HEALTH [Concomitant]
  7. TAFINLAR [Suspect]
     Active Substance: DABRAFENIB MESYLATE
     Indication: MALIGNANT MELANOMA
     Dosage: ?          OTHER FREQUENCY:1CAP AM + 2CAP PM;?
     Route: 048
     Dates: start: 20181030, end: 20190502
  8. KLOR-CON [Concomitant]
     Active Substance: POTASSIUM CHLORIDE
  9. EXCEDRIN [Concomitant]
     Active Substance: ACETAMINOPHEN\ASPIRIN\CAFFEINE
  10. BIOTIN [Concomitant]
     Active Substance: BIOTIN
  11. COLCHICINE. [Concomitant]
     Active Substance: COLCHICINE
  12. PREMARIN [Concomitant]
     Active Substance: ESTROGENS, CONJUGATED
  13. AVAPRO [Concomitant]
     Active Substance: IRBESARTAN
  14. MACROBID [Concomitant]
     Active Substance: NITROFURANTOIN\NITROFURANTOIN MONOHYDRATE
  15. PYRIDIUM [Concomitant]
     Active Substance: PHENAZOPYRIDINE

REACTIONS (1)
  - Pyrexia [None]
